FAERS Safety Report 8808593 (Version 3)
Quarter: 2014Q2

REPORT INFORMATION
  Report Type: Spontaneous
  Country: US (occurrence: US)
  Receive Date: 20120926
  Receipt Date: 20131024
  Transmission Date: 20141212
  Serious: No
  Sender: FDA-Public Use
  Company Number: US-PFIZER INC-2012235370

PATIENT
  Age: 62 Year
  Sex: 0

DRUGS (1)
  1. TETRACYCLINE HCL [Suspect]
     Dosage: UNK

REACTIONS (3)
  - Drug hypersensitivity [Unknown]
  - Swollen tongue [Unknown]
  - Tongue disorder [Unknown]
